FAERS Safety Report 9670847 (Version 4)
Quarter: 2013Q4

REPORT INFORMATION
  Report Type: Spontaneous
  Country: DE (occurrence: DE)
  Receive Date: 20131106
  Receipt Date: 20131209
  Transmission Date: 20140711
  Serious: Yes (Death, Hospitalization, Other)
  Sender: FDA-Public Use
  Company Number: DE-AMGEN-DEUSP2013077713

PATIENT
  Age: 45 Year
  Sex: Female
  Weight: 93 kg

DRUGS (13)
  1. NEULASTA [Suspect]
     Indication: PRODUCT USED FOR UNKNOWN INDICATION
     Dosage: UNK
     Route: 065
     Dates: start: 201203, end: 201205
  2. EPIRUBICIN [Concomitant]
     Indication: BREAST CANCER
     Dosage: UNK
     Route: 042
     Dates: start: 201203, end: 201205
  3. TAXOL [Concomitant]
     Dosage: UNK
  4. CYCLOPHOSPHAMIDE [Concomitant]
     Indication: BREAST CANCER
     Dosage: UNK
     Route: 042
     Dates: start: 201203, end: 201205
  5. TAXANES [Concomitant]
     Indication: BREAST CANCER
     Dosage: UNK
     Route: 042
     Dates: start: 201203, end: 201205
  6. HERCEPTIN [Concomitant]
     Dosage: UNK
     Dates: start: 201207, end: 20130712
  7. TAMOXIFEN [Concomitant]
     Dosage: UNK
     Dates: start: 201207, end: 201307
  8. HCT [Concomitant]
     Dosage: 12.5 MG, QD
  9. PANTOZOL                           /01263204/ [Concomitant]
     Dosage: 40 MG, 1-0-0
  10. PARACETAMOL [Concomitant]
     Dosage: 500 MG, 1-1-1
  11. IBUPROFEN [Concomitant]
     Dosage: 600 MG, 1-1-1
  12. BIFITERAL [Concomitant]
     Dosage: 10 ML, 1-0-1
  13. METOHEXAL                          /00376902/ [Concomitant]
     Dosage: 95 MG/12.5MG 1/2-0-1/2

REACTIONS (16)
  - Acute monocytic leukaemia [Fatal]
  - Natural killer-cell lymphoblastic lymphoma [Fatal]
  - Metastases to bone [Unknown]
  - Intervertebral disc protrusion [Unknown]
  - Spinal pain [Unknown]
  - Myelodysplastic syndrome [Unknown]
  - Thrombocytopenia [Unknown]
  - Petechiae [Unknown]
  - Oedema peripheral [Unknown]
  - Blood urine present [Unknown]
  - Constipation [Unknown]
  - Hypokalaemia [Unknown]
  - Vomiting [Unknown]
  - Normochromic normocytic anaemia [Unknown]
  - Hyponatraemia [Unknown]
  - Osteochondrosis [Unknown]
